FAERS Safety Report 5556899-9 (Version None)
Quarter: 2007Q4

REPORT INFORMATION
  Report Type: 
  Country: None (occurrence: None)
  Receive Date: 20071214
  Receipt Date: 20071206
  Transmission Date: 20080405
  Serious: Yes (Other)
  Sender: FDA-Public Use
  Company Number: PHBS2007JP20614

PATIENT
  Age: 43 Year
  Sex: Male

DRUGS (1)
  1. VOLTAREN [Suspect]
     Dosage: 50 MG/DAY
     Route: 054
     Dates: start: 20050601, end: 20050601

REACTIONS (3)
  - DISSEMINATED INTRAVASCULAR COAGULATION [None]
  - LIVER DISORDER [None]
  - OCULOMUCOCUTANEOUS SYNDROME [None]
